FAERS Safety Report 17269210 (Version 1)
Quarter: 2020Q1

REPORT INFORMATION
  Report Type: Spontaneous
  Country: BE (occurrence: BE)
  Receive Date: 20200114
  Receipt Date: 20200114
  Transmission Date: 20200409
  Serious: Yes (Hospitalization, Other)
  Sender: FDA-Public Use
  Company Number: BE-009507513-1910BEL000765

PATIENT
  Age: 71 Year
  Sex: Male
  Weight: 60 kg

DRUGS (19)
  1. KEYTRUDA [Suspect]
     Active Substance: PEMBROLIZUMAB
     Indication: NON-SMALL CELL LUNG CANCER
     Dosage: 200 MG, EVERY 21 DAYS (CYCLICAL)
     Route: 042
     Dates: start: 20190212, end: 20190212
  2. KEYTRUDA [Suspect]
     Active Substance: PEMBROLIZUMAB
     Dosage: 200 MG, EVERY 21 DAYS (CYCLICAL))
     Route: 042
     Dates: start: 20190507, end: 20190507
  3. KEYTRUDA [Suspect]
     Active Substance: PEMBROLIZUMAB
     Dosage: 200 MG, EVERY 21 DAYS (CYCLICAL))
     Route: 042
     Dates: start: 20190910, end: 20190910
  4. CISPLATIN. [Suspect]
     Active Substance: CISPLATIN
     Dosage: UNKNOWN, CYCLICAL
     Dates: start: 20190326, end: 20190326
  5. KEYTRUDA [Suspect]
     Active Substance: PEMBROLIZUMAB
     Dosage: 200 MG, EVERY 21 DAYS (CYCLICAL)
     Route: 042
     Dates: start: 20190326, end: 20190326
  6. KEYTRUDA [Suspect]
     Active Substance: PEMBROLIZUMAB
     Dosage: 200 MG, EVERY 21 DAYS (CYCLICAL))
     Route: 042
     Dates: start: 20190528, end: 20190528
  7. KEYTRUDA [Suspect]
     Active Substance: PEMBROLIZUMAB
     Dosage: 200 MG, EVERY 21 DAYS (CYCLICAL))
     Route: 042
     Dates: start: 20190618, end: 20190618
  8. PEMETREXED DISODIUM [Suspect]
     Active Substance: PEMETREXED DISODIUM
     Indication: BRONCHIAL CARCINOMA
     Dosage: UNKNOWN, CYCLICAL
     Dates: start: 20190305, end: 20190305
  9. KEYTRUDA [Suspect]
     Active Substance: PEMBROLIZUMAB
     Indication: BRONCHIAL CARCINOMA
     Dosage: 200 MG, EVERY 21 DAYS (CYCLICAL)
     Route: 042
     Dates: start: 20190305, end: 20190305
  10. KEYTRUDA [Suspect]
     Active Substance: PEMBROLIZUMAB
     Dosage: 200 MG, EVERY 21 DAYS (CYCLICAL))
     Route: 042
     Dates: start: 20190730, end: 20190730
  11. PEMETREXED DISODIUM [Suspect]
     Active Substance: PEMETREXED DISODIUM
     Indication: NON-SMALL CELL LUNG CANCER
     Dosage: UNKNOWN, CYCLICAL
     Dates: start: 20190212, end: 20190212
  12. CISPLATIN. [Suspect]
     Active Substance: CISPLATIN
     Indication: BRONCHIAL CARCINOMA
     Dosage: UNKNOWN, CYCLICAL
     Dates: start: 20190305, end: 20190305
  13. KEYTRUDA [Suspect]
     Active Substance: PEMBROLIZUMAB
     Dosage: 200 MG, EVERY 21 DAYS (CYCLICAL)
     Route: 042
     Dates: start: 20190416, end: 20190416
  14. CISPLATIN. [Suspect]
     Active Substance: CISPLATIN
     Indication: NON-SMALL CELL LUNG CANCER
     Dosage: UNKNOWN, CYCLICAL
     Dates: start: 20190212, end: 20190212
  15. CISPLATIN. [Suspect]
     Active Substance: CISPLATIN
     Dosage: UNKNOWN, CYCLICAL
     Dates: start: 20190416, end: 20190416
  16. PEMETREXED DISODIUM [Suspect]
     Active Substance: PEMETREXED DISODIUM
     Dosage: UNKNOWN, CYCLICAL
     Dates: start: 20190326, end: 20190326
  17. KEYTRUDA [Suspect]
     Active Substance: PEMBROLIZUMAB
     Dosage: 200 MG, EVERY 21 DAYS (CYCLICAL))
     Route: 042
     Dates: start: 20190709, end: 20190709
  18. KEYTRUDA [Suspect]
     Active Substance: PEMBROLIZUMAB
     Dosage: 200 MG, EVERY 21 DAYS (CYCLICAL))
     Route: 042
     Dates: start: 20190820, end: 20190820
  19. PEMETREXED DISODIUM [Suspect]
     Active Substance: PEMETREXED DISODIUM
     Dosage: UNKNOWN, CYCLICAL
     Dates: start: 20190416, end: 20190416

REACTIONS (1)
  - Lichenoid keratosis [Recovering/Resolving]

NARRATIVE: CASE EVENT DATE: 20190910
